FAERS Safety Report 17277269 (Version 5)
Quarter: 2022Q2

REPORT INFORMATION
  Report Type: Spontaneous
  Country: HU (occurrence: HU)
  Receive Date: 20200116
  Receipt Date: 20220607
  Transmission Date: 20220721
  Serious: Yes (Hospitalization, Other)
  Sender: FDA-Public Use
  Company Number: HU-ABBVIE-20K-076-3233543-00

PATIENT
  Age: 66 Year
  Sex: Female

DRUGS (3)
  1. HUMIRA [Suspect]
     Active Substance: ADALIMUMAB
     Indication: Rheumatoid arthritis
     Dosage: 80 MG /MONTH
     Route: 058
     Dates: start: 20181008, end: 20181108
  2. ASPIRIN [Suspect]
     Active Substance: ASPIRIN
     Indication: Anaemia
     Dosage: THE PATIENT TOOK ONLY ONE TABLET
     Route: 048
     Dates: start: 201811, end: 201811
  3. ASPIRIN [Suspect]
     Active Substance: ASPIRIN
     Indication: Prophylaxis

REACTIONS (4)
  - Vasculitis necrotising [Recovering/Resolving]
  - Panniculitis [Unknown]
  - Septic shock [Not Recovered/Not Resolved]
  - Anaemia [Unknown]

NARRATIVE: CASE EVENT DATE: 20181101
